FAERS Safety Report 10044308 (Version 1)
Quarter: 2014Q1

REPORT INFORMATION
  Report Type: Report from Study
  Country: ES (occurrence: ES)
  Receive Date: 20140328
  Receipt Date: 20140328
  Transmission Date: 20141002
  Serious: Yes (Hospitalization)
  Sender: FDA-Public Use
  Company Number: ES-SA-2014SA033945

PATIENT
  Age: 87 Year
  Sex: Male

DRUGS (2)
  1. SEGURIL [Suspect]
     Indication: OEDEMA
     Dosage: 2-0-0
     Route: 048
     Dates: start: 20140217
  2. HIGROTONA [Suspect]
     Indication: OEDEMA
     Dosage: 0-1-0?STRENGTH:50 MG
     Route: 048
     Dates: start: 20140217

REACTIONS (2)
  - Confusional state [Unknown]
  - Hyponatraemia [Recovered/Resolved]
